FAERS Safety Report 10576018 (Version 1)
Quarter: 2014Q4

REPORT INFORMATION
  Report Type: Spontaneous
  Country: US (occurrence: None)
  Receive Date: 20141110
  Receipt Date: 20141110
  Transmission Date: 20150529
  Serious: Yes (Hospitalization)
  Sender: FDA-Public Use
  Company Number: None

PATIENT
  Age: 75 Year
  Sex: Male
  Weight: 100 kg

DRUGS (1)
  1. MEROPENEM. [Suspect]
     Active Substance: MEROPENEM
     Route: 042
     Dates: start: 20141104, end: 20141106

REACTIONS (3)
  - Jaundice [None]
  - Vanishing bile duct syndrome [None]
  - Blood bilirubin increased [None]

NARRATIVE: CASE EVENT DATE: 20141106
